FAERS Safety Report 20755765 (Version 2)
Quarter: 2022Q2

REPORT INFORMATION
  Report Type: Spontaneous
  Country: BR (occurrence: BR)
  Receive Date: 20220427
  Receipt Date: 20220503
  Transmission Date: 20220721
  Serious: Yes (Death, Other)
  Sender: FDA-Public Use
  Company Number: BR-PFIZER INC-202200620373

PATIENT
  Age: 68 Year
  Sex: Female
  Weight: 70 kg

DRUGS (1)
  1. LYRICA [Suspect]
     Active Substance: PREGABALIN
     Dosage: UNK
     Route: 048
     Dates: end: 20220226

REACTIONS (5)
  - Diabetes mellitus [Fatal]
  - Mediastinitis [Fatal]
  - Cardiac operation [Fatal]
  - Angina pectoris [Fatal]
  - Hypertension [Unknown]
